FAERS Safety Report 9787874 (Version 3)
Quarter: 2014Q4

REPORT INFORMATION
  Report Type: Spontaneous
  Country: US (occurrence: US)
  Receive Date: 20131230
  Receipt Date: 20141029
  Transmission Date: 20150529
  Serious: Yes (Hospitalization)
  Sender: FDA-Public Use
  Company Number: US-BAYER-2013-158563

PATIENT
  Age: 31 Year
  Sex: Female

DRUGS (2)
  1. METRONIDAZOLE. [Concomitant]
     Active Substance: METRONIDAZOLE
  2. MIRENA [Suspect]
     Active Substance: LEVONORGESTREL
     Indication: CONTRACEPTION
     Dosage: 20 MCG/24HR, CONT
     Route: 015
     Dates: start: 20100902, end: 20111206

REACTIONS (5)
  - Uterine perforation [None]
  - Medical device discomfort [None]
  - Device issue [None]
  - Injury [None]
  - Medical device pain [None]

NARRATIVE: CASE EVENT DATE: 201009
